FAERS Safety Report 14102632 (Version 1)
Quarter: 2017Q4

REPORT INFORMATION
  Report Type: Spontaneous
  Country: US (occurrence: US)
  Receive Date: 20171018
  Receipt Date: 20171018
  Transmission Date: 20180321
  Serious: No
  Sender: FDA-Public Use
  Company Number: US-BAUSCH-BL-2017-007156

PATIENT
  Age: 21 Year
  Sex: Male

DRUGS (3)
  1. ADDERALL [Concomitant]
     Active Substance: AMPHETAMINE ASPARTATE\AMPHETAMINE SULFATE\DEXTROAMPHETAMINE SACCHARATE\DEXTROAMPHETAMINE SULFATE
     Indication: ATTENTION DEFICIT/HYPERACTIVITY DISORDER
     Route: 048
  2. BUPROPION EXTENDED RELEASE TABLETS [Suspect]
     Active Substance: BUPROPION
     Indication: SMOKING CESSATION THERAPY
  3. BUPROPION EXTENDED RELEASE TABLETS [Suspect]
     Active Substance: BUPROPION
     Indication: DEPRESSION
     Route: 048
     Dates: start: 20170314

REACTIONS (2)
  - Ocular hyperaemia [Recovered/Resolved]
  - Ocular hyperaemia [None]

NARRATIVE: CASE EVENT DATE: 20170314
